FAERS Safety Report 9040334 (Version 3)
Quarter: 2013Q1

REPORT INFORMATION
  Report Type: Report from Study
  Country: JP (occurrence: JP)
  Receive Date: 20130129
  Receipt Date: 20130222
  Transmission Date: 20140127
  Serious: Yes (Hospitalization)
  Sender: FDA-Public Use
  Company Number: JP-EISAI INC-E2020-11112-CLI-JP

PATIENT
  Age: 70 Year
  Sex: Female
  Weight: 55 kg

DRUGS (32)
  1. DONEPEZIL [Suspect]
     Indication: PARKINSON^S DISEASE
     Dosage: DOUBLE BLIND (3MG OR PLACEBO)
     Route: 048
     Dates: start: 20111012, end: 20111019
  2. DONEPEZIL [Suspect]
     Dosage: DOUBLE BLIND (5MG OR PLACEBO)
     Route: 048
     Dates: start: 20111020
  3. GASMOTIN [Suspect]
     Indication: PROPHYLAXIS
     Route: 048
  4. GASMOTIN [Suspect]
     Indication: GASTRITIS
     Route: 048
  5. RIVOTRIL [Suspect]
     Indication: INSOMNIA
     Route: 048
     Dates: start: 20070709, end: 20100314
  6. RIVOTRIL [Suspect]
     Route: 048
     Dates: start: 20100315, end: 20101114
  7. RIVOTRIL [Suspect]
     Route: 048
     Dates: start: 20101115, end: 20110612
  8. RIVOTRIL [Suspect]
     Route: 048
     Dates: start: 20110613
  9. MAGMITT [Suspect]
     Indication: CONSTIPATION
     Route: 048
     Dates: start: 20070710, end: 20110410
  10. MAGMITT [Suspect]
     Route: 048
     Dates: start: 20110411, end: 20121015
  11. MAGMITT [Suspect]
     Route: 048
     Dates: start: 20121016
  12. SYMMETREL [Suspect]
     Indication: PARKINSON^S DISEASE
     Route: 048
     Dates: start: 20090226, end: 20100609
  13. SYMMETREL [Suspect]
     Route: 048
     Dates: start: 20100610, end: 20100808
  14. SYMMETREL [Suspect]
     Route: 048
     Dates: start: 20100809
  15. TIZANIN [Suspect]
     Indication: PARKINSON^S DISEASE
     Route: 048
     Dates: start: 20071220
  16. TIZANIN [Suspect]
     Indication: BACK PAIN
  17. DOPACOL [Suspect]
     Indication: PARKINSON^S DISEASE
     Route: 048
     Dates: start: 20090525, end: 20090712
  18. DOPACOL [Suspect]
     Route: 048
     Dates: start: 20090713, end: 20110307
  19. DOPACOL [Suspect]
     Route: 048
     Dates: start: 20110308, end: 20110413
  20. DOPACOL [Suspect]
     Route: 048
     Dates: start: 20110414, end: 20120125
  21. DOPACOL [Suspect]
     Route: 048
     Dates: start: 20120126
  22. COMTAN [Suspect]
     Indication: PARKINSON^S DISEASE
     Route: 048
     Dates: start: 20090615
  23. GASMET [Suspect]
     Indication: GASTRITIS
     Route: 048
     Dates: start: 20110506
  24. CABASER [Suspect]
     Indication: PARKINSON^S DISEASE
     Route: 048
     Dates: start: 20111117
  25. BROTIZOLAM [Suspect]
     Indication: INSOMNIA
     Route: 048
     Dates: start: 20110414
  26. ADOFEED [Suspect]
     Indication: BACK PAIN
     Dosage: UNKNOWN
     Dates: start: 20080619
  27. EURODIN [Suspect]
     Indication: INSOMNIA
     Route: 048
     Dates: start: 20120918, end: 20121210
  28. EURODIN [Suspect]
     Route: 048
     Dates: start: 20121211
  29. LIPITOR [Suspect]
     Indication: HYPERLIPIDAEMIA
     Route: 048
     Dates: start: 20120713
  30. LAXOBERON [Suspect]
     Indication: CONSTIPATION
     Route: 048
     Dates: start: 20120705
  31. DIGOXIN [Suspect]
     Indication: VENTRICULAR EXTRASYSTOLES
     Route: 048
     Dates: start: 20120315
  32. SODIUM PICOSULFATE [Suspect]
     Indication: CONSTIPATION
     Route: 048
     Dates: start: 20121016

REACTIONS (2)
  - Deafness neurosensory [Recovering/Resolving]
  - Coronary artery disease [Not Recovered/Not Resolved]
